FAERS Safety Report 24333300 (Version 2)
Quarter: 2024Q4

REPORT INFORMATION
  Report Type: Spontaneous
  Country: US (occurrence: US)
  Receive Date: 20240918
  Receipt Date: 20241011
  Transmission Date: 20250115
  Serious: No
  Sender: PFIZER
  Company Number: US-PFIZER INC-202400258346

PATIENT
  Age: 58 Year
  Sex: Male
  Weight: 46.712 kg

DRUGS (2)
  1. INLYTA [Suspect]
     Active Substance: AXITINIB
     Dosage: TAKE 1 TABLET TWICE A DAY
     Route: 048
     Dates: start: 20240731, end: 20240911
  2. INLYTA [Suspect]
     Active Substance: AXITINIB
     Dosage: 5 MG TWICE DAILY
     Route: 048

REACTIONS (2)
  - Somnolence [Unknown]
  - Therapeutic response unexpected [Unknown]
